FAERS Safety Report 9878443 (Version 1)
Quarter: 2014Q1

REPORT INFORMATION
  Report Type: Spontaneous
  Country: US (occurrence: US)
  Receive Date: 20140206
  Receipt Date: 20140206
  Transmission Date: 20141002
  Serious: No
  Sender: FDA-Public Use
  Company Number: US-TEVA-461009USA

PATIENT
  Sex: Female
  Weight: 61.29 kg

DRUGS (10)
  1. AZILECT [Suspect]
     Indication: PARKINSON^S DISEASE
     Dosage: .5 MILLIGRAM DAILY;
  2. CITALOPRAM [Interacting]
     Indication: DEPRESSION
  3. CARBIDOPA W/LEVODOPA [Concomitant]
     Indication: PARKINSON^S DISEASE
  4. NAMENDA [Concomitant]
     Indication: MEMORY IMPAIRMENT
     Dosage: 10 MILLIGRAM DAILY;
  5. DONEPEZIL [Concomitant]
     Indication: MEMORY IMPAIRMENT
     Dosage: 5 MILLIGRAM DAILY;
  6. SIMVASTATIN [Concomitant]
     Indication: BLOOD CHOLESTEROL ABNORMAL
     Dosage: 40 MILLIGRAM DAILY;
  7. OXYBUTYNIN [Concomitant]
     Indication: URINARY INCONTINENCE
     Dosage: 10 MILLIGRAM DAILY;
  8. OMEPRAZOLE [Concomitant]
     Indication: GASTRIC DISORDER
     Dosage: 40 MILLIGRAM DAILY;
  9. VITAMINS [Concomitant]
     Indication: VITAMIN SUPPLEMENTATION
  10. ALENDRONATE [Concomitant]
     Indication: OSTEOPENIA
     Dosage: 35 MILLIGRAM DAILY;

REACTIONS (3)
  - Communication disorder [Not Recovered/Not Resolved]
  - Social avoidant behaviour [Not Recovered/Not Resolved]
  - Drug interaction [Unknown]
